FAERS Safety Report 13375290 (Version 4)
Quarter: 2018Q1

REPORT INFORMATION
  Report Type: Spontaneous
  Country: CA (occurrence: CA)
  Receive Date: 20170327
  Receipt Date: 20180301
  Transmission Date: 20180508
  Serious: Yes (Hospitalization, Other)
  Sender: FDA-Public Use
  Company Number: CA-ASTRAZENECA-2017SE29915

PATIENT
  Age: 18909 Day
  Sex: Female

DRUGS (2)
  1. NEXIUM [Suspect]
     Active Substance: ESOMEPRAZOLE MAGNESIUM
     Indication: GASTROOESOPHAGEAL REFLUX DISEASE
     Route: 048
  2. NEXIUM [Suspect]
     Active Substance: ESOMEPRAZOLE MAGNESIUM
     Indication: IMPAIRED GASTRIC EMPTYING
     Route: 048

REACTIONS (9)
  - Vitamin B12 deficiency [Recovering/Resolving]
  - Femur fracture [Unknown]
  - Pneumonia [Recovering/Resolving]
  - Malabsorption [Recovering/Resolving]
  - Thoracic vertebral fracture [Recovering/Resolving]
  - Osteopenia [Recovering/Resolving]
  - Fall [Recovering/Resolving]
  - Ankle fracture [Recovering/Resolving]
  - Tibia fracture [Unknown]

NARRATIVE: CASE EVENT DATE: 20111230
